FAERS Safety Report 8958256 (Version 3)
Quarter: 2013Q1

REPORT INFORMATION
  Report Type: Spontaneous
  Country: JP (occurrence: JP)
  Receive Date: 20121211
  Receipt Date: 20130227
  Transmission Date: 20140127
  Serious: Yes (Hospitalization)
  Sender: FDA-Public Use
  Company Number: JP-B.I. PHARMACEUTICALS,INC./RIDGEFIELD-2012-BP-23658NB

PATIENT
  Age: 72 Year
  Sex: Female

DRUGS (5)
  1. PRAZAXA [Suspect]
     Indication: ATRIAL FIBRILLATION
     Dosage: 300 MG
     Route: 048
     Dates: start: 20120730, end: 20120805
  2. TAKEPRON [Concomitant]
     Dosage: 15 MG
     Route: 048
     Dates: start: 20120730, end: 20120803
  3. LIPITOR [Concomitant]
     Dosage: 10 MG
     Route: 048
  4. SELBEX [Concomitant]
     Dosage: 150 MG
     Route: 048
  5. BAYASPIRIN [Concomitant]
     Dosage: 100 MG
     Route: 048

REACTIONS (2)
  - Agranulocytosis [Recovered/Resolved]
  - Urinary tract infection [Recovered/Resolved]
